FAERS Safety Report 10520011 (Version 1)
Quarter: 2014Q4

REPORT INFORMATION
  Report Type: Spontaneous
  Country: PT (occurrence: PT)
  Receive Date: 20141015
  Receipt Date: 20141015
  Transmission Date: 20150528
  Serious: Yes (Other)
  Sender: FDA-Public Use
  Company Number: PHHY2014PT130712

PATIENT
  Age: 45 Year
  Sex: Female

DRUGS (2)
  1. COTRIMOXAZOLE [Suspect]
     Active Substance: SULFAMETHOXAZOLE\TRIMETHOPRIM
     Indication: CYSTITIS
     Route: 048
  2. TROSPIUM CHLORIDE. [Concomitant]
     Active Substance: TROSPIUM CHLORIDE
     Indication: CYSTITIS
     Route: 065

REACTIONS (6)
  - Ocular hypertension [Recovering/Resolving]
  - Blindness [Unknown]
  - Flat anterior chamber of eye [Unknown]
  - Myopia [Recovering/Resolving]
  - Headache [Unknown]
  - Narrow anterior chamber angle [Unknown]
